FAERS Safety Report 24615824 (Version 1)
Quarter: 2024Q4

REPORT INFORMATION
  Report Type: Spontaneous
  Country: US (occurrence: US)
  Receive Date: 20241113
  Receipt Date: 20241113
  Transmission Date: 20250115
  Serious: Yes (Other)
  Sender: THE MENTHOLATUM COMPANY
  Company Number: US-The Mentholatum Company-2165006

PATIENT
  Sex: Male

DRUGS (2)
  1. ROHTO OPTIC GLOW [Suspect]
     Active Substance: NAPHAZOLINE HYDROCHLORIDE\POVIDONE\PROPYLENE GLYCOL
     Indication: Dry eye
     Dates: start: 20241029, end: 20241029
  2. ROHTO OPTIC GLOW [Suspect]
     Active Substance: NAPHAZOLINE HYDROCHLORIDE\POVIDONE\PROPYLENE GLYCOL
     Indication: Ocular hyperaemia

REACTIONS (3)
  - Eye irritation [Recovered/Resolved]
  - Ocular hyperaemia [Recovered/Resolved]
  - Eye pain [Recovered/Resolved]

NARRATIVE: CASE EVENT DATE: 20241029
